FAERS Safety Report 8819983 (Version 2)
Quarter: 2012Q4

REPORT INFORMATION
  Report Type: 
  Country: US (occurrence: US)
  Receive Date: 20121001
  Receipt Date: 20121010
  Transmission Date: 20130627
  Serious: Yes (Hospitalization)
  Sender: FDA-Public Use
  Company Number: PHHY2012US084704

PATIENT
  Sex: Female

DRUGS (4)
  1. METOPROLOL [Suspect]
     Dosage: 25 mg, BID
  2. DIOVAN [Suspect]
     Dosage: 60 mg, BID
  3. SIMVASTATIN [Suspect]
     Dosage: UNK UKN, UNK
  4. ASPIRIN [Concomitant]

REACTIONS (2)
  - Coronary artery disease [Unknown]
  - Pain [Not Recovered/Not Resolved]
